FAERS Safety Report 23556183 (Version 17)
Quarter: 2024Q2

REPORT INFORMATION
  Report Type: Other
  Country: FR (occurrence: FR)
  Receive Date: 20240223
  Receipt Date: 20240613
  Transmission Date: 20240716
  Serious: Yes (Death, Life-Threatening, Hospitalization, Other)
  Sender: FDA-Public Use
  Company Number: None

PATIENT
  Age: 34 Year
  Sex: Male
  Weight: 79 kg

DRUGS (112)
  1. IBUPROFEN [Interacting]
     Active Substance: IBUPROFEN
     Indication: Back pain
     Dosage: 1 DOSAGE FORM (UNK THERAPY START DATE: //2016 THERAPY END DATE: //2016) (CAPSULE)
     Route: 048
     Dates: start: 2016, end: 2016
  2. IBUPROFEN [Interacting]
     Active Substance: IBUPROFEN
     Indication: Back pain
     Dosage: UNK (THERAPY START DATE: //2016 THERAPY END DATE: //2016) (CAPSULE)
     Route: 048
     Dates: start: 2016, end: 2016
  3. IBUPROFEN [Interacting]
     Active Substance: IBUPROFEN
     Dosage: UNK (FILM-COATED TABLET)
     Route: 048
     Dates: start: 20160902, end: 2016
  4. ALPRAZOLAM [Interacting]
     Active Substance: ALPRAZOLAM
     Indication: Psychiatric symptom
     Dosage: UNK
     Route: 048
  5. ALPRAZOLAM [Interacting]
     Active Substance: ALPRAZOLAM
     Indication: Depression
  6. OXYCODONE [Interacting]
     Active Substance: OXYCODONE\OXYCODONE HYDROCHLORIDE
     Indication: Product used for unknown indication
     Dosage: UNK
     Route: 065
  7. ACETAMINOPHEN AND CODEINE [Interacting]
     Active Substance: ACETAMINOPHEN\CODEINE PHOSPHATE
     Indication: Product used for unknown indication
     Dosage: 500 MILLIGRAM (EFFERVESCENT TABLET)
     Route: 048
     Dates: start: 2016, end: 2016
  8. MORPHINE SULFATE [Interacting]
     Active Substance: MORPHINE SULFATE
     Indication: Product used for unknown indication
     Dosage: UNK
     Route: 065
  9. TRAMADOL HYDROCHLORIDE [Interacting]
     Active Substance: TRAMADOL HYDROCHLORIDE
     Indication: Back pain
     Dosage: UNK
     Route: 065
     Dates: start: 2016, end: 2016
  10. TRAMADOL HYDROCHLORIDE [Interacting]
     Active Substance: TRAMADOL HYDROCHLORIDE
     Indication: Back pain
     Dosage: UNK (THERAPY START DATE: //2016 THERAPY END DATE: //2016))
     Route: 048
     Dates: start: 20160903, end: 2016
  11. ARTANE [Interacting]
     Active Substance: TRIHEXYPHENIDYL HYDROCHLORIDE
     Indication: Depression
     Dosage: 5 MILLIGRAM
     Route: 048
     Dates: start: 201608, end: 20160908
  12. ARTANE [Interacting]
     Active Substance: TRIHEXYPHENIDYL HYDROCHLORIDE
     Indication: Psychiatric symptom
     Dosage: UNK
     Route: 048
  13. ARTANE [Interacting]
     Active Substance: TRIHEXYPHENIDYL HYDROCHLORIDE
     Dosage: UNK
     Route: 048
     Dates: start: 20160810, end: 2016
  14. ARTANE [Interacting]
     Active Substance: TRIHEXYPHENIDYL HYDROCHLORIDE
     Dosage: 5 MILLIGRAM (UNK)
     Route: 048
     Dates: start: 20160810, end: 20160908
  15. CODEINE PHOSPHATE\IBUPROFEN [Interacting]
     Active Substance: CODEINE PHOSPHATE\IBUPROFEN
     Indication: Back pain
     Dosage: 1 DOSAGE FORM, 0.3 DAYS (1 DOSAGE FORM THERAPY START DATE: //2016 THERAPY END DATE: //2016)
     Route: 048
     Dates: start: 20160902, end: 2016
  16. CODEINE PHOSPHATE\IBUPROFEN [Interacting]
     Active Substance: CODEINE PHOSPHATE\IBUPROFEN
     Indication: Back pain
     Dosage: UNK
     Route: 048
     Dates: start: 20160902, end: 2016
  17. CODEINE PHOSPHATE\IBUPROFEN [Interacting]
     Active Substance: CODEINE PHOSPHATE\IBUPROFEN
     Indication: Back pain
  18. MIANSERIN HYDROCHLORIDE [Interacting]
     Active Substance: MIANSERIN HYDROCHLORIDE
     Indication: Back pain
     Dosage: 30 MILLIGRAM (THERAPY START DATE: //2016 THERAPY END DATE: //2016.  THE DOCTOR PRESCRIBED HIM OVER A
     Route: 065
     Dates: start: 2016, end: 2016
  19. MIANSERIN HYDROCHLORIDE [Interacting]
     Active Substance: MIANSERIN HYDROCHLORIDE
     Indication: Back pain
     Dosage: UNK
     Route: 065
     Dates: start: 2016, end: 2016
  20. MIANSERIN HYDROCHLORIDE [Interacting]
     Active Substance: MIANSERIN HYDROCHLORIDE
     Indication: Back pain
  21. MIANSERIN HYDROCHLORIDE [Interacting]
     Active Substance: MIANSERIN HYDROCHLORIDE
     Indication: Depression
  22. MIANSERIN HYDROCHLORIDE [Interacting]
     Active Substance: MIANSERIN HYDROCHLORIDE
     Indication: Psychiatric symptom
  23. SKENAN [Interacting]
     Active Substance: MORPHINE SULFATE
     Indication: Back pain
     Dosage: UNK
     Route: 065
  24. SKENAN [Interacting]
     Active Substance: MORPHINE SULFATE
     Indication: Back pain
     Dosage: UNK
     Route: 065
     Dates: start: 2016, end: 2016
  25. SKENAN [Interacting]
     Active Substance: MORPHINE SULFATE
     Dosage: UNK
     Route: 065
     Dates: start: 2016, end: 2016
  26. SKENAN [Interacting]
     Active Substance: MORPHINE SULFATE
     Dosage: UNK
     Route: 065
     Dates: start: 2016, end: 2016
  27. SKENAN [Interacting]
     Active Substance: MORPHINE SULFATE
     Dosage: 60 MILLIGRAM (PROLONGED RELEASE CAPSULE)
     Route: 065
     Dates: start: 20160902, end: 20160905
  28. SKENAN [Interacting]
     Active Substance: MORPHINE SULFATE
     Dosage: 10 MILLIGRAM (PROLONGED RELEASE TABLET)
     Route: 065
  29. SKENAN [Interacting]
     Active Substance: MORPHINE SULFATE
     Dosage: 30 MILLIGRAM (PROLONGED-RELEASE TABLET)
     Route: 065
     Dates: start: 20160902, end: 20160905
  30. SKENAN [Interacting]
     Active Substance: MORPHINE SULFATE
     Dosage: 1 DOSAGE FORM, QD (PROLONGED-RELEASE TABLET)
     Route: 065
     Dates: start: 2016, end: 2016
  31. FENTANYL [Interacting]
     Active Substance: FENTANYL\FENTANYL CITRATE
     Indication: Back pain
     Dosage: 12 MICROGRAM (THERAPY START DATE: //2016 THERAPY END DATE: //2016)
     Route: 062
     Dates: start: 2016, end: 2016
  32. FENTANYL [Interacting]
     Active Substance: FENTANYL\FENTANYL CITRATE
     Indication: Back pain
  33. PAROXETINE MESYLATE [Suspect]
     Active Substance: PAROXETINE MESYLATE
     Indication: Back pain
     Dosage: 20 MILLIGRAM ((PAROXETINE 20 MG/UNK THERAPY START DATE: //2016 THERAPY END DATE: //2016)
     Route: 048
     Dates: start: 20160817, end: 20160908
  34. PAROXETINE MESYLATE [Suspect]
     Active Substance: PAROXETINE MESYLATE
     Indication: Back pain
     Dosage: UNK (PAROXETINE 20 MG/UNK THERAPY START DATE: //2016 THERAPY END DATE: //2016)
     Route: 065
     Dates: start: 20160829, end: 2016
  35. PAROXETINE MESYLATE [Suspect]
     Active Substance: PAROXETINE MESYLATE
     Indication: Back pain
     Dosage: 20 MILLIGRAM (THERAPY START DATE: //2016 THERAPY END DATE: //2016
     Route: 065
     Dates: start: 201608, end: 20160908
  36. PAROXETINE MESYLATE [Suspect]
     Active Substance: PAROXETINE MESYLATE
     Dosage: 20 MILLIGRAM
     Route: 048
     Dates: start: 20160829, end: 2016
  37. KETAMINE [Interacting]
     Active Substance: KETAMINE
     Indication: Back pain
     Dosage: UNK THERAPY START DATE: //2016 THERAPY END DATE: //2016
     Route: 065
     Dates: start: 2016, end: 2016
  38. KETAMINE [Interacting]
     Active Substance: KETAMINE
     Indication: Back pain
  39. KETAMINE [Interacting]
     Active Substance: KETAMINE
     Indication: Back pain
  40. CLOTIAZEPAM [Interacting]
     Active Substance: CLOTIAZEPAM
     Indication: Product used for unknown indication
     Dosage: UNK
     Route: 065
  41. CLOTIAZEPAM [Interacting]
     Active Substance: CLOTIAZEPAM
     Dosage: UNK (SCORED TABLET)
     Route: 048
     Dates: start: 20160830, end: 2016
  42. CLOTIAZEPAM [Interacting]
     Active Substance: CLOTIAZEPAM
     Dosage: 3 DOSAGE FORM, QD (3 TABLETS PER DAY FOR A MONTH; SCORED TABLET)
     Route: 048
     Dates: start: 20160830, end: 2016
  43. CLOTIAZEPAM [Interacting]
     Active Substance: CLOTIAZEPAM
     Dosage: UNK
     Route: 065
  44. VALIUM [Interacting]
     Active Substance: DIAZEPAM
     Indication: Psychiatric symptom
     Dosage: 10 MILLIGRAM
     Route: 048
     Dates: start: 20160902, end: 20160905
  45. VALIUM [Interacting]
     Active Substance: DIAZEPAM
     Indication: Depression
  46. PRAZEPAM [Interacting]
     Active Substance: PRAZEPAM
     Indication: Product used for unknown indication
     Dosage: UNK
     Route: 048
  47. PRAZEPAM [Interacting]
     Active Substance: PRAZEPAM
     Dosage: UNK
     Route: 048
     Dates: start: 20160902, end: 2016
  48. PRAZEPAM [Interacting]
     Active Substance: PRAZEPAM
     Dosage: 10 MILLIGRAM
     Route: 065
  49. PRAZEPAM [Interacting]
     Active Substance: PRAZEPAM
     Dosage: UNK
     Route: 065
  50. THIOCOLCHICOSIDE [Interacting]
     Active Substance: THIOCOLCHICOSIDE
     Indication: Product used for unknown indication
     Dosage: UNK
     Route: 065
  51. THIOCOLCHICOSIDE [Interacting]
     Active Substance: THIOCOLCHICOSIDE
     Dosage: UNK
     Route: 065
     Dates: start: 2016, end: 2016
  52. THIOCOLCHICOSIDE [Interacting]
     Active Substance: THIOCOLCHICOSIDE
     Dosage: UNK
     Route: 048
  53. ETIFOXINE [Interacting]
     Active Substance: ETIFOXINE
     Indication: Product used for unknown indication
     Dosage: 20 MILLIGRAM
     Route: 065
     Dates: start: 201608, end: 20160908
  54. ETIFOXINE [Interacting]
     Active Substance: ETIFOXINE
     Dosage: 20 MILLIGRAM
     Route: 048
     Dates: start: 20160810, end: 2016
  55. SKENAN [Interacting]
     Active Substance: MORPHINE SULFATE
     Indication: Back pain
     Dosage: 1 DOSAGE FORM, QD (1 DOSAGE FORM, 1/DAY  THERAPY START AND END DATE //2016 STRENGTH-10MG)
     Route: 048
     Dates: start: 201607, end: 2016
  56. SKENAN [Interacting]
     Active Substance: MORPHINE SULFATE
     Indication: Back pain
     Dosage: 60 MILLIGRAM, QD
     Route: 048
     Dates: start: 20160902, end: 20160905
  57. SKENAN [Interacting]
     Active Substance: MORPHINE SULFATE
     Indication: Back pain
     Dosage: UNK (THE DOCTOR PRESCRIBED HIM OVER A PERIOD BETWEEN 28-JUL-2016 AND 05-SEP-2016 )
     Route: 065
  58. SKENAN [Interacting]
     Active Substance: MORPHINE SULFATE
     Dosage: UNK
     Route: 065
     Dates: start: 201608, end: 20160908
  59. SKENAN [Interacting]
     Active Substance: MORPHINE SULFATE
     Dosage: 1 DOSAGE FORM, QD (THERAPY START DATE: //2016 THERAPY END DATE: //2016.  THE DOCTOR PRESCRIBED HIM O
     Route: 065
     Dates: start: 2016, end: 2016
  60. OXYCONTIN [Interacting]
     Active Substance: OXYCODONE HYDROCHLORIDE
     Indication: Product used for unknown indication
     Dosage: UNK
     Route: 065
  61. CLOBAZAM [Interacting]
     Active Substance: CLOBAZAM
     Indication: Product used for unknown indication
     Dosage: 10 UNK
     Route: 048
  62. CLOBAZAM [Interacting]
     Active Substance: CLOBAZAM
     Dosage: UNK (SCORED TABLET)
     Route: 048
     Dates: start: 20160824, end: 20160908
  63. CLOBAZAM [Interacting]
     Active Substance: CLOBAZAM
     Dosage: UNK
     Route: 048
     Dates: start: 201608, end: 20160908
  64. CLOBAZAM [Interacting]
     Active Substance: CLOBAZAM
     Dosage: UNK
     Route: 048
  65. CLOBAZAM [Interacting]
     Active Substance: CLOBAZAM
     Dosage: 10 MILLIGRAM
     Route: 065
  66. QUETIAPINE FUMARATE [Suspect]
     Active Substance: QUETIAPINE FUMARATE
     Indication: Product used for unknown indication
     Dosage: UNK
     Route: 065
  67. QUETIAPINE FUMARATE [Suspect]
     Active Substance: QUETIAPINE FUMARATE
     Dosage: UNK
     Route: 048
     Dates: start: 20160830, end: 2016
  68. QUETIAPINE FUMARATE [Suspect]
     Active Substance: QUETIAPINE FUMARATE
     Dosage: 500 MILLIGRAM, AT BED TIME (1 TABLET AT NIGHT FOR ONE MONTH)
     Route: 048
     Dates: start: 20160830, end: 2016
  69. QUETIAPINE FUMARATE [Suspect]
     Active Substance: QUETIAPINE FUMARATE
     Dosage: 500 MILLIGRAM
     Route: 048
     Dates: start: 20160830, end: 2016
  70. PAROXETINE HYDROCHLORIDE [Interacting]
     Active Substance: PAROXETINE HYDROCHLORIDE\PAROXETINE HYDROCHLORIDE ANHYDROUS
     Indication: Back pain
     Dosage: 20 MILLIGRAM
     Route: 065
     Dates: start: 201608, end: 20160908
  71. PAROXETINE HYDROCHLORIDE [Interacting]
     Active Substance: PAROXETINE HYDROCHLORIDE\PAROXETINE HYDROCHLORIDE ANHYDROUS
     Dosage: 20 MILLIGRAM (PAROXETINE 20 MG/UNK THERAPY START DATE: //2016 THERAPY END DATE: //2016)
     Route: 048
     Dates: start: 20160829, end: 2016
  72. CLONAZEPAM [Interacting]
     Active Substance: CLONAZEPAM
     Indication: Product used for unknown indication
     Dosage: 10 MILLIGRAM
     Route: 065
  73. CODEINE PHOSPHATE\IBUPROFEN [Suspect]
     Active Substance: CODEINE PHOSPHATE\IBUPROFEN
     Indication: Product used for unknown indication
     Dosage: UNK
     Route: 048
     Dates: start: 20160902, end: 2016
  74. CODEINE PHOSPHATE\IBUPROFEN [Suspect]
     Active Substance: CODEINE PHOSPHATE\IBUPROFEN
     Indication: Back pain
     Dosage: 1 DOSAGE FORM, 0.33/DAY/ (CAPSULE HARD)
     Route: 065
  75. CODEINE PHOSPHATE\IBUPROFEN [Suspect]
     Active Substance: CODEINE PHOSPHATE\IBUPROFEN
     Dosage: 1 DOSAGE FORM, 3/DAY
     Route: 065
     Dates: start: 2016, end: 2016
  76. QUETIAPINE FUMARATE [Suspect]
     Active Substance: QUETIAPINE FUMARATE
     Indication: Product used for unknown indication
     Dosage: UNK
     Route: 048
     Dates: start: 20160830, end: 2016
  77. NIFUROXAZIDE [Suspect]
     Active Substance: NIFUROXAZIDE
     Indication: Product used for unknown indication
     Dosage: UNK
     Route: 048
     Dates: start: 2016, end: 2016
  78. FENTANYL [Suspect]
     Active Substance: FENTANYL\FENTANYL CITRATE
     Indication: Back pain
     Dosage: UNK (UNK THERAPY START DATE: //2016 THERAPY END DATE: //2016/DUROGESIC)
     Route: 062
     Dates: start: 20160726, end: 2016
  79. FENTANYL [Suspect]
     Active Substance: FENTANYL\FENTANYL CITRATE
     Indication: Back pain
     Dosage: 12 MICROGRAM
     Route: 062
     Dates: start: 2016, end: 2016
  80. FENTANYL [Suspect]
     Active Substance: FENTANYL\FENTANYL CITRATE
     Indication: Back pain
  81. COCAINE [Interacting]
     Active Substance: COCAINE
     Indication: Product used for unknown indication
     Dosage: UNK
     Route: 065
  82. MEPHENESIN [Interacting]
     Active Substance: MEPHENESIN
     Indication: Product used for unknown indication
     Dosage: UNK
     Route: 065
  83. AMISULPRIDE [Interacting]
     Active Substance: AMISULPRIDE
     Indication: Psychiatric symptom
     Dosage: UNK
     Route: 048
  84. AMISULPRIDE [Interacting]
     Active Substance: AMISULPRIDE
     Indication: Depression
  85. AMISULPRIDE [Interacting]
     Active Substance: AMISULPRIDE
     Indication: Schizophrenia
  86. OXAZEPAM [Interacting]
     Active Substance: OXAZEPAM
     Indication: Product used for unknown indication
     Dosage: UNK
     Route: 065
  87. OXAZEPAM [Interacting]
     Active Substance: OXAZEPAM
     Indication: Psychiatric symptom
     Dosage: UNK
     Route: 048
  88. OXAZEPAM [Interacting]
     Active Substance: OXAZEPAM
     Indication: Depression
  89. ZOPICLONE [Interacting]
     Active Substance: ZOPICLONE
     Indication: Psychiatric symptom
     Dosage: UNK
     Route: 048
  90. ZOPICLONE [Interacting]
     Active Substance: ZOPICLONE
     Indication: Depression
  91. NORDAZEPAM [Interacting]
     Active Substance: NORDAZEPAM
     Indication: Product used for unknown indication
     Dosage: UNK
     Route: 065
  92. TEMAZEPAM [Interacting]
     Active Substance: TEMAZEPAM
     Indication: Product used for unknown indication
     Dosage: UNK
     Route: 065
  93. QUETIAPINE [Interacting]
     Active Substance: QUETIAPINE
     Indication: Product used for unknown indication
     Dosage: 300 MILLIGRAM, QD
     Route: 065
  94. QUETIAPINE [Interacting]
     Active Substance: QUETIAPINE
     Dosage: 500 MILLIGRAM (FILM-COATED TABLET)
     Route: 065
  95. ACETAMINOPHEN\TRAMADOL [Interacting]
     Active Substance: ACETAMINOPHEN\TRAMADOL
     Indication: Product used for unknown indication
     Dosage: UNK
     Route: 065
  96. NAFRONYL [Interacting]
     Active Substance: NAFRONYL
     Indication: Product used for unknown indication
     Dosage: UNK
     Route: 065
  97. ACETAMINOPHEN [Interacting]
     Active Substance: ACETAMINOPHEN
     Indication: Product used for unknown indication
     Dosage: UNK
     Route: 065
  98. VALIUM [Concomitant]
     Active Substance: DIAZEPAM
     Indication: Psychiatric symptom
     Dosage: UNK
     Route: 048
  99. VALIUM [Concomitant]
     Active Substance: DIAZEPAM
     Indication: Depression
  100. ZOPICLONE [Concomitant]
     Active Substance: ZOPICLONE
     Indication: Psychiatric symptom
     Dosage: UNK
     Route: 048
  101. ZOPICLONE [Concomitant]
     Active Substance: ZOPICLONE
     Indication: Depression
     Dosage: UNK
     Route: 048
  102. ALPRAZOLAM [Concomitant]
     Active Substance: ALPRAZOLAM
     Indication: Psychiatric symptom
     Dosage: UNK
     Route: 048
  103. ALPRAZOLAM [Concomitant]
     Active Substance: ALPRAZOLAM
     Indication: Depression
  104. AMISULPRIDE [Concomitant]
     Active Substance: AMISULPRIDE
     Indication: Depression
     Dosage: UNK
     Route: 048
  105. AMISULPRIDE [Concomitant]
     Active Substance: AMISULPRIDE
     Indication: Psychiatric symptom
     Dosage: UNK
     Route: 048
  106. OXAZEPAM [Concomitant]
     Active Substance: OXAZEPAM
     Indication: Psychiatric symptom
     Dosage: UNK
     Route: 048
  107. OXAZEPAM [Concomitant]
     Active Substance: OXAZEPAM
     Indication: Depression
     Dosage: UNK
     Route: 048
  108. OXAZEPAM [Concomitant]
     Active Substance: OXAZEPAM
     Indication: Psychiatric symptom
  109. MIANSERIN HYDROCHLORIDE [Concomitant]
     Active Substance: MIANSERIN HYDROCHLORIDE
     Indication: Psychiatric symptom
     Dosage: UNK
     Route: 048
  110. MIANSERIN HYDROCHLORIDE [Concomitant]
     Active Substance: MIANSERIN HYDROCHLORIDE
     Indication: Depression
  111. ARTANE [Concomitant]
     Active Substance: TRIHEXYPHENIDYL HYDROCHLORIDE
     Indication: Psychiatric symptom
     Dosage: UNK
     Route: 048
  112. ARTANE [Concomitant]
     Active Substance: TRIHEXYPHENIDYL HYDROCHLORIDE
     Indication: Depression

REACTIONS (61)
  - Hepatic cytolysis [Fatal]
  - Hepatic cytolysis [Fatal]
  - Cardiomyopathy [Fatal]
  - Cardiomyopathy [Fatal]
  - Hepatitis acute [Fatal]
  - Hepatitis acute [Fatal]
  - Encephalopathy [Fatal]
  - Encephalopathy [Fatal]
  - Myocardial infarction [Fatal]
  - Myocardial infarction [Unknown]
  - Hyperglycaemia [Fatal]
  - Coronary artery stenosis [Fatal]
  - Cholecystitis infective [Fatal]
  - Gallbladder injury [Fatal]
  - White blood cell count increased [Fatal]
  - Pancreas infection [Fatal]
  - Stenosis [Fatal]
  - Myocarditis [Fatal]
  - Myocarditis [Fatal]
  - Myocarditis [Fatal]
  - Jaundice [Fatal]
  - Synovitis [Unknown]
  - Coronary artery stenosis [Fatal]
  - Coronary artery stenosis [Fatal]
  - Pulmonary oedema [Fatal]
  - Acute pulmonary oedema [Fatal]
  - Aspiration [Fatal]
  - Hyperglycaemia [Fatal]
  - Cardiac disorder [Fatal]
  - Cardio-respiratory arrest [Fatal]
  - Arrhythmia [Unknown]
  - Coma [Fatal]
  - Coma [Fatal]
  - Hepatic enzyme increased [Fatal]
  - Respiratory depression [Fatal]
  - Respiratory depression [Fatal]
  - Confusional state [Fatal]
  - Somnolence [Fatal]
  - Somnolence [Fatal]
  - Hypotension [Unknown]
  - Toxicity to various agents [Fatal]
  - Accidental poisoning [Fatal]
  - Accidental poisoning [Unknown]
  - Labelled drug-drug interaction issue [Not Recovered/Not Resolved]
  - Drug screen false positive [Fatal]
  - Product prescribing issue [Unknown]
  - Overdose [Fatal]
  - Overdose [Fatal]
  - Drug abuse [Unknown]
  - Asteatosis [Unknown]
  - Aggression [Unknown]
  - Leukocytosis [Unknown]
  - Thirst [Unknown]
  - Logorrhoea [Unknown]
  - Monocytosis [Unknown]
  - Hypersomnia [Unknown]
  - Panic attack [Unknown]
  - Inflammation [Unknown]
  - Cardiac disorder [Unknown]
  - Overdose [Not Recovered/Not Resolved]
  - Intentional product misuse [Unknown]

NARRATIVE: CASE EVENT DATE: 20160101
